FAERS Safety Report 4707711-9 (Version None)
Quarter: 2005Q2

REPORT INFORMATION
  Report Type: 
  Country: None (occurrence: None)
  Receive Date: 20050629
  Receipt Date: 20050418
  Transmission Date: 20051028
  Serious: No
  Sender: FDA-Public Use
  Company Number: 05P-163-0297676-00

PATIENT
  Age: 74 Year
  Sex: Female
  Weight: 70.7611 kg

DRUGS (4)
  1. HUMIRA [Suspect]
     Indication: RHEUMATOID ARTHRITIS
     Dosage: 40 MG, 1 IN 2 W, SUBCUTANEOUS
     Route: 058
     Dates: start: 20050201, end: 20050407
  2. METHOTREXATE [Concomitant]
  3. FOLIC ACID [Concomitant]
  4. ATORVASTATIN CALCIUM [Concomitant]

REACTIONS (2)
  - INJECTION SITE PAIN [None]
  - RASH [None]
